FAERS Safety Report 5675666-9 (Version None)
Quarter: 2008Q1

REPORT INFORMATION
  Report Type: 
  Country: None (occurrence: None)
  Receive Date: 20080321
  Receipt Date: 20080317
  Transmission Date: 20080703
  Serious: No
  Sender: FDA-Public Use
  Company Number: US-BAXTER-2008BH000833

PATIENT
  Age: 72 Year
  Sex: Male
  Weight: 75 kg

DRUGS (2)
  1. HEPARIN SODIUM [Suspect]
     Indication: THROMBOSIS PROPHYLAXIS
     Route: 010
     Dates: end: 20080101
  2. INTERFERON [Suspect]
     Indication: GASTRIC CANCER
     Dosage: DOSE UNIT:UNKNOWN
     Route: 065

REACTIONS (6)
  - HEADACHE [None]
  - HYPOTENSION [None]
  - INCOHERENT [None]
  - MALAISE [None]
  - RESTLESSNESS [None]
  - VOMITING [None]
